FAERS Safety Report 8933734 (Version 1)
Quarter: 2012Q4

REPORT INFORMATION
  Report Type: 
  Country: US (occurrence: US)
  Receive Date: 20121128
  Receipt Date: 20121128
  Transmission Date: 20130627
  Serious: No
  Sender: FDA-Public Use
  Company Number: US-009507513-1211USA010223

PATIENT
  Sex: Male
  Weight: 99.1 kg

DRUGS (3)
  1. VICTRELIS [Suspect]
     Indication: HEPATITIS C
     Dosage: 800 mg, tid
     Route: 048
  2. PEGASYS [Suspect]
  3. RIBAPAK [Suspect]

REACTIONS (5)
  - Pruritus [Unknown]
  - Nausea [Unknown]
  - Weight decreased [Unknown]
  - Myalgia [Unknown]
  - Bone pain [Unknown]
